FAERS Safety Report 7117843-6 (Version None)
Quarter: 2010Q4

REPORT INFORMATION
  Report Type: 
  Country: None (occurrence: None)
  Receive Date: 20101118
  Receipt Date: 20101118
  Transmission Date: 20110411
  Serious: Yes (Hospitalization)
  Sender: FDA-Public Use
  Company Number: None

PATIENT
  Sex: Female
  Weight: 8 kg

DRUGS (1)
  1. PROPRANOLOL [Suspect]
     Indication: HAEMANGIOMA
     Dosage: 2MG/KGDAY 3 DIVIDED DOSES PO
     Route: 048
     Dates: start: 20100524, end: 20100927

REACTIONS (2)
  - HYPOGLYCAEMIA UNAWARENESS [None]
  - HYPOGLYCAEMIC SEIZURE [None]
